FAERS Safety Report 9772661 (Version 3)
Quarter: 2014Q1

REPORT INFORMATION
  Report Type: Spontaneous
  Country: ES (occurrence: ES)
  Receive Date: 20131219
  Receipt Date: 20140122
  Transmission Date: 20141002
  Serious: Yes (Hospitalization)
  Sender: FDA-Public Use
  Company Number: ES-GE HEALTHCARE MEDICAL DIAGNOSTICS-VISP-PR-1312S-0966

PATIENT
  Age: 76 Year
  Sex: Male

DRUGS (2)
  1. VISIPAQUE [Suspect]
     Indication: NEOPLASM
     Route: 042
     Dates: start: 20131204, end: 20131204
  2. VISIPAQUE [Suspect]
     Indication: DIAGNOSTIC PROCEDURE

REACTIONS (2)
  - Odynophagia [Unknown]
  - Dyspnoea [Unknown]
